FAERS Safety Report 8876647 (Version 2)
Quarter: 2012Q4

REPORT INFORMATION
  Report Type: 
  Country: FR (occurrence: FR)
  Receive Date: 20121029
  Receipt Date: 20121128
  Transmission Date: 20130627
  Serious: Yes (Death, Hospitalization)
  Sender: FDA-Public Use
  Company Number: FR-B.I. PHARMACEUTICALS,INC./RIDGEFIELD-2012-FF-01543FF

PATIENT
  Age: 86 Year
  Sex: Female

DRUGS (7)
  1. PRADAXA [Suspect]
     Indication: ATRIAL FIBRILLATION
     Dosage: 150 mg
     Route: 048
     Dates: start: 20121005
  2. FUROSEMIDE [Concomitant]
     Dosage: 40 mg
  3. SPIRONOLACTONE [Concomitant]
     Dosage: 2.5 mg
  4. COVERSYL [Concomitant]
     Dosage: 5 mg
  5. DIAMICRON [Concomitant]
     Dosage: 60 mg
  6. EPINITRIL [Concomitant]
  7. LEVOTHYROX [Concomitant]
     Indication: HYPOTHYROIDISM

REACTIONS (5)
  - Cerebral haemorrhage [Fatal]
  - Altered state of consciousness [Unknown]
  - Haematoma [Unknown]
  - Epistaxis [Unknown]
  - Haematemesis [Unknown]
